FAERS Safety Report 9504219 (Version 1)
Quarter: 2013Q3

REPORT INFORMATION
  Report Type: Spontaneous
  Country: US (occurrence: US)
  Receive Date: 20130906
  Receipt Date: 20130906
  Transmission Date: 20140515
  Serious: Yes (Death)
  Sender: FDA-Public Use
  Company Number: US-GLAXOSMITHKLINE-A1040273A

PATIENT
  Age: 54 Year
  Sex: Male

DRUGS (4)
  1. ADVAIR [Suspect]
     Indication: CHRONIC OBSTRUCTIVE PULMONARY DISEASE
     Dosage: 1PUFF PER DAY
     Route: 055
     Dates: start: 201209, end: 20130903
  2. LISINOPRIL [Concomitant]
  3. ALBUTEROL NEBULIZER [Concomitant]
  4. IPRATROPIUM [Concomitant]

REACTIONS (2)
  - Death [Fatal]
  - Cardiac arrest [Fatal]
